FAERS Safety Report 18185841 (Version 3)
Quarter: 2021Q3

REPORT INFORMATION
  Report Type: Other
  Country: RU (occurrence: RU)
  Receive Date: 20200824
  Receipt Date: 20210918
  Transmission Date: 20211014
  Serious: Yes (Other)
  Sender: FDA-Public Use
  Company Number: RU-ROCHE-2661142

PATIENT
  Age: 56 Year
  Sex: Female
  Weight: 73 kg

DRUGS (14)
  1. OCRELIZUMAB. [Suspect]
     Active Substance: OCRELIZUMAB
     Indication: PRIMARY PROGRESSIVE MULTIPLE SCLEROSIS
     Route: 042
     Dates: start: 20200131, end: 20200131
  2. METHYLPREDNISOLONE. [Concomitant]
     Active Substance: METHYLPREDNISOLONE
     Route: 042
     Dates: start: 20200807, end: 20200807
  3. OCRELIZUMAB. [Suspect]
     Active Substance: OCRELIZUMAB
     Route: 042
     Dates: start: 20200214
  4. OCRELIZUMAB. [Suspect]
     Active Substance: OCRELIZUMAB
     Route: 042
     Dates: start: 20210212
  5. CHLOROPYRAMINE [Concomitant]
     Active Substance: CHLOROPYRAMINE
     Indication: PREMEDICATION
     Route: 042
     Dates: start: 20200131, end: 20200131
  6. METHYLPREDNISOLONE. [Concomitant]
     Active Substance: METHYLPREDNISOLONE
     Route: 042
     Dates: start: 20200214, end: 20200214
  7. OCRELIZUMAB. [Suspect]
     Active Substance: OCRELIZUMAB
     Route: 042
     Dates: start: 20200807
  8. ROLITEN [Concomitant]
     Route: 048
     Dates: start: 20201106, end: 20210106
  9. CHLOROPYRAMINE [Concomitant]
     Active Substance: CHLOROPYRAMINE
     Route: 042
     Dates: start: 20200214, end: 20200214
  10. METHYLPREDNISOLONE. [Concomitant]
     Active Substance: METHYLPREDNISOLONE
     Indication: PREMEDICATION
     Route: 042
     Dates: start: 20200131, end: 20200131
  11. CHLOROPYRAMINE [Concomitant]
     Active Substance: CHLOROPYRAMINE
     Route: 042
     Dates: start: 20200807, end: 20200807
  12. CHLOROPYRAMINE [Concomitant]
     Active Substance: CHLOROPYRAMINE
     Route: 042
     Dates: start: 20210819, end: 20210819
  13. METHYLPREDNISOLONE. [Concomitant]
     Active Substance: METHYLPREDNISOLONE
     Route: 042
     Dates: start: 20210819, end: 20210819
  14. BIOTIN [Concomitant]
     Active Substance: BIOTIN
     Indication: PROPHYLAXIS
     Route: 048
     Dates: start: 20200809

REACTIONS (4)
  - Nausea [Not Recovered/Not Resolved]
  - Pneumonia [Recovered/Resolved]
  - Parathyroid disorder [Not Recovered/Not Resolved]
  - Vitamin D deficiency [Not Recovered/Not Resolved]

NARRATIVE: CASE EVENT DATE: 20200421
